FAERS Safety Report 8547985-X (Version None)
Quarter: 2012Q3

REPORT INFORMATION
  Report Type: 
  Country: None (occurrence: None)
  Receive Date: 20120729
  Receipt Date: 20120719
  Transmission Date: 20120928
  Serious: Yes (Hospitalization, Disabling, Other)
  Sender: FDA-Public Use
  Company Number: US-009507513-1109USA02800

PATIENT

DRUGS (6)
  1. FOSAMAX PLUS D [Suspect]
     Indication: OSTEOPENIA
     Dosage: 70 MG, QW
     Route: 048
     Dates: start: 20040601, end: 20070501
  2. FOSAMAX [Suspect]
     Indication: OSTEOPENIA
     Dosage: 70 MG, QW
     Route: 048
     Dates: start: 20070601, end: 20090601
  3. FOSAMAX [Suspect]
     Indication: OSTEOPOROSIS
     Dosage: 70 MG, QW
     Route: 048
     Dates: start: 20020101, end: 20040501
  4. TOPAMAX [Concomitant]
     Indication: MIGRAINE
     Dosage: 50 MG, HS
  5. FORTEO [Concomitant]
     Indication: OSTEOPOROSIS
     Dosage: 600 MICROGRAM, QD
  6. FOSAMAX [Suspect]
     Dosage: 35 MG, QW
     Route: 048

REACTIONS (67)
  - FEMUR FRACTURE [None]
  - ANAEMIA [None]
  - HYPOACUSIS [None]
  - HYPERLIPIDAEMIA [None]
  - SLEEP APNOEA SYNDROME [None]
  - HYPOGLYCAEMIA [None]
  - BODY TINEA [None]
  - HAEMORRHOIDS [None]
  - OFF LABEL USE [None]
  - GASTROOESOPHAGEAL REFLUX DISEASE [None]
  - MUSCULOSKELETAL DISORDER [None]
  - HAEMORRHAGE [None]
  - VESTIBULAR NEURONITIS [None]
  - OEDEMA [None]
  - FOOT FRACTURE [None]
  - GASTROENTERITIS [None]
  - VERTEBRAL ARTERY OCCLUSION [None]
  - FRACTURE NONUNION [None]
  - INFECTION [None]
  - SCOLIOSIS [None]
  - INTERMITTENT CLAUDICATION [None]
  - WEIGHT INCREASED [None]
  - C-REACTIVE PROTEIN INCREASED [None]
  - DIVERTICULUM [None]
  - ANXIETY [None]
  - MUSCULOSKELETAL PAIN [None]
  - MUSCLE SPASMS [None]
  - DIARRHOEA [None]
  - LOW TURNOVER OSTEOPATHY [None]
  - CATARACT [None]
  - LIMB ASYMMETRY [None]
  - VARICOSE VEIN [None]
  - POOR QUALITY SLEEP [None]
  - FOLLICULITIS [None]
  - VERTIGO [None]
  - BACK PAIN [None]
  - MOUTH ULCERATION [None]
  - OSTEOARTHRITIS [None]
  - ENDODONTIC PROCEDURE [None]
  - BUNION [None]
  - INTERVERTEBRAL DISC DEGENERATION [None]
  - CARDIAC MURMUR [None]
  - BURSITIS [None]
  - TROPONIN INCREASED [None]
  - BONE DEFORMITY [None]
  - DEPRESSION [None]
  - ADJUSTMENT DISORDER [None]
  - HERPES ZOSTER [None]
  - CARPAL TUNNEL SYNDROME [None]
  - FLATULENCE [None]
  - DEVICE FAILURE [None]
  - HYPERTENSION [None]
  - ARTHRITIS [None]
  - BACK INJURY [None]
  - RADICULOPATHY [None]
  - SEDATION [None]
  - RESTLESS LEGS SYNDROME [None]
  - FALL [None]
  - IRRITABLE BOWEL SYNDROME [None]
  - DRUG INEFFECTIVE [None]
  - SYSTEMIC LUPUS ERYTHEMATOSUS [None]
  - POLYMYALGIA RHEUMATICA [None]
  - HYPOAESTHESIA [None]
  - RED BLOOD CELL SEDIMENTATION RATE INCREASED [None]
  - DENTAL CARIES [None]
  - UROSEPSIS [None]
  - PAIN IN EXTREMITY [None]
